FAERS Safety Report 5816934-7 (Version None)
Quarter: 2008Q3

REPORT INFORMATION
  Report Type: 
  Country: None (occurrence: None)
  Receive Date: 20080722
  Receipt Date: 20080709
  Transmission Date: 20090109
  Serious: Yes (Other)
  Sender: FDA-Public Use
  Company Number: PHHY2008JP11470

PATIENT
  Sex: Female
  Weight: 48 kg

DRUGS (3)
  1. ZOMETA [Suspect]
     Indication: METASTASES TO BONE
     Dosage: 4 MG DAILY
     Route: 042
     Dates: start: 20060524, end: 20080310
  2. AREDIA [Suspect]
     Indication: METASTASES TO BONE
     Dosage: 90 MG DAILY
     Route: 042
     Dates: start: 20050615, end: 20060414
  3. NAVELBINE [Concomitant]
     Indication: TUMOUR MARKER INCREASED
     Dosage: UNK
     Dates: start: 20071031

REACTIONS (10)
  - BLOOD LACTATE DEHYDROGENASE INCREASED [None]
  - C-REACTIVE PROTEIN INCREASED [None]
  - HAEMATOCRIT DECREASED [None]
  - HAEMOGLOBIN DECREASED [None]
  - OSTEONECROSIS [None]
  - PYREXIA [None]
  - RED BLOOD CELL COUNT DECREASED [None]
  - SWELLING [None]
  - TOOTH LOSS [None]
  - WHITE BLOOD CELL COUNT DECREASED [None]
